FAERS Safety Report 25828794 (Version 1)
Quarter: 2025Q3

REPORT INFORMATION
  Report Type: Spontaneous
  Country: EU (occurrence: EU)
  Receive Date: 20250922
  Receipt Date: 20250922
  Transmission Date: 20251020
  Serious: Yes (Hospitalization)
  Sender: ROCHE
  Company Number: None

PATIENT
  Age: 39 Year
  Sex: Male
  Weight: 53 kg

DRUGS (15)
  1. MYCOPHENOLATE MOFETIL [Suspect]
     Active Substance: MYCOPHENOLATE MOFETIL
     Indication: Behcet^s syndrome
     Dosage: 1 PIECE TWICE A DAY
     Route: 048
     Dates: start: 20170630, end: 20250822
  2. MYCOPHENOLATE MOFETIL [Suspect]
     Active Substance: MYCOPHENOLATE MOFETIL
     Indication: Aortic disorder
  3. ALFACALCIDOL CAPSULE 0,5UG / Brand name not specified [Concomitant]
     Route: 048
  4. AMYLA/LIPA/PROTEA CAP MSR (CREON+CREON 10000) / CREON 10000 CAPSULE MS [Concomitant]
     Route: 048
  5. ESOMEPRAZOL TABLET MSR 20MG / Brand name not specified [Concomitant]
     Route: 048
  6. FOLIUMZUUR / Brand name not specified [Concomitant]
  7. INSULINE ASPART INJVLST 100E/ML / FIASP INJVLST 100E/ML FLACON 10ML [Concomitant]
  8. INSULINE ISOFAAN INJSUSP 100IE/ML / Brand name not specified [Concomitant]
  9. LEVOTHYROXINE CAPSULE  13UG / Brand name not specified [Concomitant]
     Route: 048
  10. LISINOPRIL / Brand name not specified [Concomitant]
  11. METOCLOPRAMIDE [Concomitant]
     Active Substance: METOCLOPRAMIDE
     Route: 048
  12. NADROPARINE INJVLST  9500IE/ML / FRAXIPARINE INJVLST 2850IE/0,3ML (950 [Concomitant]
  13. NIFEDIPINE / Brand name not specified [Concomitant]
  14. PARACETAMOL TABLET  500MG / Brand name not specified [Concomitant]
     Route: 048
  15. SEVELAMEER PDR V SUSPENSIE 0,8G / Brand name not specified [Concomitant]
     Route: 048

REACTIONS (1)
  - Hepatic enzyme abnormal [Not Recovered/Not Resolved]
